FAERS Safety Report 6472880-X (Version None)
Quarter: 2009Q4

REPORT INFORMATION
  Report Type: 
  Country: None (occurrence: None)
  Receive Date: 20091203
  Receipt Date: 20081218
  Transmission Date: 20100525
  Serious: No
  Sender: FDA-Public Use
  Company Number: US-AMGEN-KDL324706

PATIENT
  Sex: Female

DRUGS (2)
  1. ENBREL [Suspect]
     Indication: RHEUMATOID ARTHRITIS
     Route: 058
     Dates: start: 20061025
  2. ENBREL [Suspect]
     Indication: JUVENILE ARTHRITIS

REACTIONS (6)
  - CALCINOSIS [None]
  - INJECTION SITE HAEMATOMA [None]
  - INJECTION SITE SWELLING [None]
  - LOCALISED INFECTION [None]
  - POST PROCEDURAL HAEMORRHAGE [None]
  - RHEUMATOID ARTHRITIS [None]
